FAERS Safety Report 24394883 (Version 5)
Quarter: 2025Q3

REPORT INFORMATION
  Report Type: Report from Study
  Country: US (occurrence: US)
  Receive Date: 20241004
  Receipt Date: 20250723
  Transmission Date: 20251021
  Serious: Yes (Hospitalization, Other)
  Sender: CSL BEHRING
  Company Number: US-BEH-2024180795

PATIENT
  Age: 76 Year
  Sex: Male

DRUGS (7)
  1. PRIVIGEN [Suspect]
     Active Substance: HUMAN IMMUNOGLOBULIN G
     Indication: Multifocal motor neuropathy
     Route: 042
  2. PRIVIGEN [Suspect]
     Active Substance: HUMAN IMMUNOGLOBULIN G
     Route: 042
  3. PRIVIGEN [Suspect]
     Active Substance: HUMAN IMMUNOGLOBULIN G
     Route: 042
  4. PHENOBARBITAL [Suspect]
     Active Substance: PHENOBARBITAL
     Indication: Premedication
  5. NAPROXEN [Concomitant]
     Active Substance: NAPROXEN
     Indication: Premedication
  6. CLARITIN [Concomitant]
     Active Substance: LORATADINE
     Indication: Premedication
  7. TYLENOL [Concomitant]
     Active Substance: ACETAMINOPHEN
     Indication: Premedication

REACTIONS (16)
  - Renal failure [Recovered/Resolved]
  - Eczema [Recovered/Resolved]
  - Rash [Recovered/Resolved]
  - Dehydration [Not Recovered/Not Resolved]
  - Infusion site reaction [Not Recovered/Not Resolved]
  - Illness [Not Recovered/Not Resolved]
  - General physical health deterioration [Not Recovered/Not Resolved]
  - Renal failure [Unknown]
  - Nephrotic syndrome [Recovered/Resolved]
  - Glomerular filtration rate decreased [Unknown]
  - Inflammation [Unknown]
  - Therapy interrupted [Unknown]
  - Headache [Recovered/Resolved]
  - Somnolence [Unknown]
  - Neuritis [Unknown]
  - Antibody test abnormal [Unknown]
